FAERS Safety Report 6985193-4 (Version None)
Quarter: 2010Q3

REPORT INFORMATION
  Report Type: 
  Country: None (occurrence: None)
  Receive Date: 20100914
  Receipt Date: 20100914
  Transmission Date: 20110219
  Serious: No
  Sender: FDA-Public Use
  Company Number: None

PATIENT
  Age: 19 Year
  Sex: Female

DRUGS (2)
  1. ZYPREXA [Suspect]
     Dates: start: 20090121, end: 20090211
  2. Z-PAK (AZITHROMYCIN) [Suspect]
     Dates: start: 20090209, end: 20090211

REACTIONS (9)
  - APLASIA PURE RED CELL [None]
  - HEPATIC FIBROSIS [None]
  - HEPATITIS CHOLESTATIC [None]
  - HYPERSENSITIVITY [None]
  - LIVER INJURY [None]
  - LUNG INFECTION [None]
  - LYMPHADENOPATHY [None]
  - MYCOPLASMA INFECTION [None]
  - PLEURAL EFFUSION [None]
